FAERS Safety Report 7451251-3 (Version None)
Quarter: 2011Q2

REPORT INFORMATION
  Report Type: 
  Country: None (occurrence: None)
  Receive Date: 20110429
  Receipt Date: 20110429
  Transmission Date: 20111010
  Serious: Yes (Life-Threatening)
  Sender: FDA-Public Use
  Company Number: None

PATIENT
  Age: 30 Year
  Sex: Female

DRUGS (2)
  1. DROSPIRENONE/ETHINYL ESTRADIOL 3 MG/0.03 MG BAYER [Suspect]
     Indication: ORAL CONTRACEPTION
     Dosage: 1 TABLET DAILY PO
     Route: 048
     Dates: start: 20050101, end: 20090101
  2. DROSPIRENONE/ETHINYL ESTRADIOL 3 MG/0.03 MG WATSON [Suspect]
     Indication: ORAL CONTRACEPTION
     Dosage: 1 TABLET DAILY PO
     Route: 048
     Dates: start: 20100101

REACTIONS (5)
  - VENTRICULAR EXTRASYSTOLES [None]
  - HYPOTENSION [None]
  - CHEST PAIN [None]
  - TACHYCARDIA [None]
  - PULMONARY EMBOLISM [None]
